FAERS Safety Report 6829922-9 (Version None)
Quarter: 2010Q3

REPORT INFORMATION
  Report Type: 
  Country: None (occurrence: None)
  Receive Date: 20100711
  Receipt Date: 20100401
  Transmission Date: 20110219
  Serious: No
  Sender: FDA-Public Use
  Company Number: US-ALLERGAN-1004336US

PATIENT
  Sex: Female

DRUGS (4)
  1. LATISSE [Suspect]
     Indication: GROWTH OF EYELASHES
  2. FISH OIL [Concomitant]
  3. COMBINATIONS OF VITAMINS [Concomitant]
  4. UNKNOWN PRESCRIPTION [Concomitant]
     Indication: PRODUCT USED FOR UNKNOWN INDICATION
     Dosage: 1 GTT, UNK

REACTIONS (3)
  - ASTHENOPIA [None]
  - EYE PAIN [None]
  - SKIN HYPERPIGMENTATION [None]
